FAERS Safety Report 22243331 (Version 1)
Quarter: 2023Q2

REPORT INFORMATION
  Report Type: Spontaneous
  Country: CA (occurrence: CA)
  Receive Date: 20230424
  Receipt Date: 20230424
  Transmission Date: 20230721
  Serious: Yes (Other)
  Sender: FDA-Public Use
  Company Number: CA-AUROBINDO-AUR-APL-2023-031803

PATIENT
  Sex: Female

DRUGS (12)
  1. AZITHROMYCIN [Suspect]
     Active Substance: AZITHROMYCIN
     Indication: Beta haemolytic streptococcal infection
     Dosage: 1 GRAM, ONCE A DAY
     Route: 048
  2. AZITHROMYCIN [Suspect]
     Active Substance: AZITHROMYCIN
     Indication: Amniotic cavity infection
  3. AMPICILLIN [Suspect]
     Active Substance: AMPICILLIN
     Indication: Beta haemolytic streptococcal infection
     Dosage: 1 GRAM (1 EVERY  HOUR)
     Route: 042
  4. AMPICILLIN [Suspect]
     Active Substance: AMPICILLIN
     Indication: Amniotic cavity infection
  5. ATOSIBAN [Suspect]
     Active Substance: ATOSIBAN
     Indication: Product used for unknown indication
     Dosage: UNK
     Route: 065
  6. BETAMETHASONE [Suspect]
     Active Substance: BETAMETHASONE
     Indication: Product used for unknown indication
     Dosage: 12 MILLIGRAM, ONCE A DAY
     Route: 030
  7. CEFTRIAXONE [Suspect]
     Active Substance: CEFTRIAXONE
     Indication: Beta haemolytic streptococcal infection
     Dosage: UNK
     Route: 065
  8. CEFTRIAXONE [Suspect]
     Active Substance: CEFTRIAXONE
     Indication: Amniotic cavity infection
  9. GENTAMICIN [Suspect]
     Active Substance: GENTAMICIN
     Indication: Beta haemolytic streptococcal infection
     Dosage: 8 MILLIGRAM (1 EVERY 8 HOUR)
     Route: 042
  10. GENTAMICIN [Suspect]
     Active Substance: GENTAMICIN
     Indication: Amniotic cavity infection
  11. DEXTROSE [Suspect]
     Active Substance: DEXTROSE\DEXTROSE MONOHYDRATE
     Indication: Product used for unknown indication
     Dosage: UNK
     Route: 065
  12. MAGNESIUM SULFATE [Suspect]
     Active Substance: MAGNESIUM SULFATE
     Indication: Nervous system disorder prophylaxis
     Dosage: UNK
     Route: 065

REACTIONS (3)
  - Premature baby [Unknown]
  - Maternal exposure during pregnancy [Unknown]
  - Product use in unapproved indication [Unknown]
